FAERS Safety Report 6232113-6 (Version None)
Quarter: 2009Q2

REPORT INFORMATION
  Report Type: 
  Country: None (occurrence: None)
  Receive Date: 20090616
  Receipt Date: 20090601
  Transmission Date: 20091009
  Serious: Yes (Hospitalization, Other)
  Sender: FDA-Public Use
  Company Number: US-ELI_LILLY_AND_COMPANY-US200901002450

PATIENT
  Sex: Male

DRUGS (20)
  1. CYMBALTA [Suspect]
     Dosage: 1 D/F, UNK
     Dates: end: 20080708
  2. CYMBALTA [Suspect]
     Dosage: 120 MG, DAILY (1/D)
     Dates: start: 20080709, end: 20081210
  3. TYLENOL                                 /SCH/ [Concomitant]
     Dosage: 500 MG, EVERY 6 HRS
  4. AMANTADINE HCL [Concomitant]
     Dosage: 100 MG, DAILY (1/D)
  5. ASPIRIN [Concomitant]
     Dosage: 81 MG, DAILY (1/D)
  6. BACLOFEN [Concomitant]
     Dosage: 20 MG, 4/D
  7. CALCIUM [Concomitant]
     Dosage: UNK, 3/D
  8. CELEXA [Concomitant]
     Dosage: 30 MG, DAILY (1/D)
  9. DITROPAN XL [Concomitant]
     Dosage: 10 MG, DAILY (1/D)
  10. FOSAMAX [Concomitant]
     Dosage: 70 MG, WEEKLY (1/W)
  11. GABAPENTIN [Concomitant]
     Dosage: 300 MG, 3/D
  12. CLARITIN [Concomitant]
     Dosage: 10 MG, DAILY (1/D)
  13. ATIVAN [Concomitant]
     Dosage: 2 MG, EVERY 6 HRS
  14. NAMENDA [Concomitant]
     Dosage: 10 MG, 2/D
  15. METOPROLOL SUCCINATE [Concomitant]
     Dosage: 25 MG, DAILY (1/D)
  16. MULTI-VITAMIN [Concomitant]
     Dosage: 1 D/F, DAILY (1/D)
  17. MIRALAX [Concomitant]
     Dosage: 1 D/F, DAILY (1/D)
     Route: 054
  18. SENOKOT [Concomitant]
     Dosage: 1 D/F, 2/D
  19. TRAZODONE HCL [Concomitant]
     Dosage: 50 MG, EACH EVENING
  20. VICODIN [Concomitant]
     Dosage: 1 D/F, EVERY 6 HRS

REACTIONS (4)
  - ABDOMINAL PAIN [None]
  - CONSTIPATION [None]
  - LIVER FUNCTION TEST ABNORMAL [None]
  - URINARY TRACT INFECTION [None]
